FAERS Safety Report 9516870 (Version 4)
Quarter: 2014Q2

REPORT INFORMATION
  Report Type: Report from Study
  Country: FR (occurrence: FR)
  Receive Date: 20130911
  Receipt Date: 20140425
  Transmission Date: 20141212
  Serious: Yes (Hospitalization, Other)
  Sender: FDA-Public Use
  Company Number: FR-BRISTOL-MYERS SQUIBB COMPANY-18772129

PATIENT
  Age: 59 Year
  Sex: Female

DRUGS (7)
  1. CETUXIMAB [Suspect]
     Indication: NEOPLASM
     Dosage: ON 08-MAR-2013:400MG/M2(612MG)?RECENT DATE:15-MAR-2013 AT 250MG/M2(384MG)
     Route: 042
     Dates: start: 20130308
  2. TORISEL [Suspect]
     Indication: NEOPLASM
     Route: 042
     Dates: start: 20130315
  3. INNOHEP [Concomitant]
  4. IMOVANE [Concomitant]
  5. COTAREG [Concomitant]
     Indication: HYPERTENSION
  6. VALSARTAN [Concomitant]
     Indication: HYPERTENSION
  7. HYDROCHLOROTHIAZIDE [Concomitant]
     Indication: HYPERTENSION

REACTIONS (3)
  - Mucosal inflammation [Recovered/Resolved]
  - Dyspnoea [Unknown]
  - Bronchitis [Unknown]
